FAERS Safety Report 21633120 (Version 1)
Quarter: 2022Q4

REPORT INFORMATION
  Report Type: Report from Study
  Country: IT (occurrence: IT)
  Receive Date: 20221123
  Receipt Date: 20221123
  Transmission Date: 20230113
  Serious: Yes (Death, Hospitalization, Other)
  Sender: FDA-Public Use
  Company Number: IT-BAXTER-2022BAX025243

PATIENT
  Sex: Female
  Weight: 60 kg

DRUGS (3)
  1. DOXORUBICIN [Suspect]
     Active Substance: DOXORUBICIN
     Indication: Ovarian cancer
     Dosage: 30 MILLIGRAM/SQ. METER, Q4W, CYCLE 1, DAY 1
     Route: 042
     Dates: start: 20210712, end: 20210811
  2. YONDELIS [Suspect]
     Active Substance: TRABECTEDIN
     Indication: Ovarian cancer
     Dosage: 1.2 MILLIGRAM/SQ. METER, Q4W
     Route: 042
     Dates: start: 20210712, end: 20210712
  3. LEVOTHYROXINE SODIUM [Concomitant]
     Active Substance: LEVOTHYROXINE SODIUM
     Indication: Hypothyroidism
     Dosage: ONGOING
     Route: 065

REACTIONS (5)
  - Ovarian cancer [Fatal]
  - Disease progression [Fatal]
  - Intestinal obstruction [Not Recovered/Not Resolved]
  - Dyspnoea [Recovered/Resolved]
  - Dyspnoea [Recovered/Resolved]

NARRATIVE: CASE EVENT DATE: 20210820
